FAERS Safety Report 12423031 (Version 2)
Quarter: 2020Q4

REPORT INFORMATION
  Report Type: Spontaneous
  Country: US (occurrence: US)
  Receive Date: 20160601
  Receipt Date: 20201110
  Transmission Date: 20210113
  Serious: No
  Sender: FDA-Public Use
  Company Number: US-PFIZER INC-2016253088

PATIENT
  Age: 68 Year
  Sex: Female
  Weight: 55 kg

DRUGS (2)
  1. LYRICA [Suspect]
     Active Substance: PREGABALIN
     Indication: NEUROPATHY PERIPHERAL
     Dosage: 25 MG, 2X/DAY
  2. LYRICA [Suspect]
     Active Substance: PREGABALIN
     Indication: SEIZURE
     Dosage: 50 MG, 3X/DAY

REACTIONS (4)
  - Therapeutic product effect incomplete [Unknown]
  - Osteopenia [Not Recovered/Not Resolved]
  - Underdose [Unknown]
  - Osteoporosis [Not Recovered/Not Resolved]

NARRATIVE: CASE EVENT DATE: 2016
